FAERS Safety Report 16869732 (Version 2)
Quarter: 2019Q4

REPORT INFORMATION
  Report Type: Spontaneous
  Country: US (occurrence: US)
  Receive Date: 20190930
  Receipt Date: 20191016
  Transmission Date: 20200122
  Serious: No
  Sender: FDA-Public Use
  Company Number: US-SA-2019SA269358

PATIENT
  Age: 56 Year
  Sex: Female

DRUGS (1)
  1. CABLIVI [Suspect]
     Active Substance: CAPLACIZUMAB-YHDP
     Indication: THROMBOTIC MICROANGIOPATHY
     Dosage: 11 MG, UNK
     Route: 058
     Dates: start: 20190916

REACTIONS (3)
  - Blood glucose decreased [Unknown]
  - Headache [Unknown]
  - Hyperhidrosis [Unknown]
